FAERS Safety Report 16928927 (Version 1)
Quarter: 2019Q4

REPORT INFORMATION
  Report Type: Spontaneous
  Country: US (occurrence: US)
  Receive Date: 20190824
  Receipt Date: 20190824
  Transmission Date: 20200122
  Serious: Yes (Hospitalization)
  Sender: FDA-Public Use
  Company Number: None

PATIENT
  Age: 70 Year
  Sex: Male
  Weight: 90 kg

DRUGS (2)
  1. TAXOL [Suspect]
     Active Substance: PACLITAXEL
     Dates: end: 20190715
  2. CARBOPLATIN. [Suspect]
     Active Substance: CARBOPLATIN
     Dates: end: 20190715

REACTIONS (7)
  - Confusional state [None]
  - Pneumothorax [None]
  - Leukocytosis [None]
  - Haemoglobin decreased [None]
  - Agitation [None]
  - Atrial fibrillation [None]
  - Pneumonia [None]

NARRATIVE: CASE EVENT DATE: 20190723
